FAERS Safety Report 6717582-7 (Version None)
Quarter: 2010Q2

REPORT INFORMATION
  Report Type: 
  Country: None (occurrence: None)
  Receive Date: 20100507
  Receipt Date: 20100507
  Transmission Date: 20101027
  Serious: Yes (Life-Threatening)
  Sender: FDA-Public Use
  Company Number: None

PATIENT
  Age: 56 Year
  Sex: Female
  Weight: 75.3 kg

DRUGS (1)
  1. LEXISCAN [Suspect]
     Indication: CARDIAC STRESS TEST
     Dosage: 0.4MG X 1 DOSE IV BOLUS, 1 DOSE
     Route: 040
     Dates: start: 20061222, end: 20091222

REACTIONS (2)
  - CARDIAC ARREST [None]
  - SINUS BRADYCARDIA [None]
